FAERS Safety Report 12110199 (Version 2)
Quarter: 2016Q1

REPORT INFORMATION
  Report Type: Spontaneous
  Country: US (occurrence: US)
  Receive Date: 20160224
  Receipt Date: 20160309
  Transmission Date: 20160526
  Serious: Yes (Death)
  Sender: FDA-Public Use
  Company Number: US-009507513-1602USA009959

PATIENT
  Age: 67 Year
  Sex: Male

DRUGS (1)
  1. KEYTRUDA [Suspect]
     Active Substance: PEMBROLIZUMAB
     Dosage: 188 MG, Q3W
     Route: 042
     Dates: start: 201511, end: 201512

REACTIONS (1)
  - Death [Fatal]

NARRATIVE: CASE EVENT DATE: 201601
